FAERS Safety Report 13276591 (Version 1)
Quarter: 2017Q1

REPORT INFORMATION
  Report Type: Spontaneous
  Country: US (occurrence: US)
  Receive Date: 20170228
  Receipt Date: 20170228
  Transmission Date: 20170428
  Serious: No
  Sender: FDA-Public Use
  Company Number: US-ELI_LILLY_AND_COMPANY-US201608012922

PATIENT
  Sex: Male

DRUGS (1)
  1. CYMBALTA [Suspect]
     Active Substance: DULOXETINE HYDROCHLORIDE
     Indication: DEPRESSION
     Dosage: 60 MG, QD
     Route: 065

REACTIONS (9)
  - Drug withdrawal syndrome [Unknown]
  - Hyperhidrosis [Unknown]
  - Insomnia [Unknown]
  - Affect lability [Unknown]
  - Paraesthesia [Unknown]
  - Irritability [Unknown]
  - Agitation [Unknown]
  - Nausea [Unknown]
  - Dizziness [Unknown]
